FAERS Safety Report 11136901 (Version 1)
Quarter: 2015Q2

REPORT INFORMATION
  Report Type: Spontaneous
  Country: US (occurrence: US)
  Receive Date: 20150526
  Receipt Date: 20150526
  Transmission Date: 20150821
  Serious: Yes (Congenital Anomaly, Other)
  Sender: FDA-Public Use
  Company Number: US-ELI_LILLY_AND_COMPANY-US201505000321

PATIENT

DRUGS (3)
  1. PRENAT                             /00023601/ [Concomitant]
     Route: 064
  2. PROZAC [Suspect]
     Active Substance: FLUOXETINE HYDROCHLORIDE
     Indication: DEPRESSION
     Dosage: 20 MG, QD
     Route: 064
     Dates: start: 19970214, end: 19970310
  3. LORTAB [Concomitant]
     Active Substance: ACETAMINOPHEN\HYDROCODONE BITARTRATE
     Route: 064

REACTIONS (6)
  - Ventricular septal defect [Recovered/Resolved with Sequelae]
  - Cardiac murmur [Recovered/Resolved]
  - Aortic valve incompetence [Unknown]
  - Foetal exposure during pregnancy [Recovered/Resolved]
  - Patent ductus arteriosus [Recovered/Resolved with Sequelae]
  - Cardiac aneurysm [Unknown]

NARRATIVE: CASE EVENT DATE: 199710
